FAERS Safety Report 21379325 (Version 6)
Quarter: 2024Q2

REPORT INFORMATION
  Report Type: Report from Study
  Country: US (occurrence: US)
  Receive Date: 20220927
  Receipt Date: 20240612
  Transmission Date: 20240715
  Serious: No
  Sender: FDA-Public Use
  Company Number: US-NOVARTISTESTPH-NVSC2022US217904

PATIENT
  Sex: Female

DRUGS (2)
  1. COSENTYX [Suspect]
     Active Substance: SECUKINUMAB
     Indication: Product used for unknown indication
     Dosage: UNK
     Route: 065
  2. COSENTYX [Suspect]
     Active Substance: SECUKINUMAB
     Dosage: 150 MG, QMO (150MG/1ML)
     Route: 058

REACTIONS (6)
  - Visual impairment [Unknown]
  - Memory impairment [Unknown]
  - Pruritus [Unknown]
  - Psoriasis [Unknown]
  - Pain [Unknown]
  - Burning sensation [Unknown]
